FAERS Safety Report 14754435 (Version 1)
Quarter: 2018Q2

REPORT INFORMATION
  Report Type: Spontaneous
  Country: IN (occurrence: IN)
  Receive Date: 20180412
  Receipt Date: 20180412
  Transmission Date: 20180711
  Serious: Yes (Other)
  Sender: FDA-Public Use
  Company Number: PHHY2018IN057575

PATIENT
  Age: 60 Year
  Sex: Male

DRUGS (1)
  1. TRAVOPROST. [Suspect]
     Active Substance: TRAVOPROST
     Indication: OPEN ANGLE GLAUCOMA
     Dosage: 0.004 %, QD AT NIGHT FOR BOTH THE EYES
     Route: 065

REACTIONS (1)
  - Retinal detachment [Recovered/Resolved]
